FAERS Safety Report 17851361 (Version 2)
Quarter: 2020Q4

REPORT INFORMATION
  Report Type: Report from Study
  Country: US (occurrence: US)
  Receive Date: 20200602
  Receipt Date: 20201013
  Transmission Date: 20210113
  Serious: Yes (Hospitalization)
  Sender: FDA-Public Use
  Company Number: US-VERASTEM-2017-00068

PATIENT

DRUGS (8)
  1. CLOBETASOL [Concomitant]
     Active Substance: CLOBETASOL
     Indication: PRURITUS
     Dosage: 0.05 %, BID
     Route: 061
     Dates: start: 20160211
  2. PREDNISONE. [Concomitant]
     Active Substance: PREDNISONE
     Indication: PROPHYLAXIS
     Dosage: 40 MG, QD
     Route: 048
     Dates: start: 20171030
  3. BENZONATATE. [Concomitant]
     Active Substance: BENZONATATE
     Indication: COUGH
     Dosage: 100 MG, TID
     Route: 048
     Dates: start: 20171016
  4. BORTEZOMIB. [Suspect]
     Active Substance: BORTEZOMIB
     Indication: CUTANEOUS T-CELL LYMPHOMA
     Dosage: 1 MG/M2, DAYS 1,4,8,11 Q28DAYS
     Route: 058
     Dates: start: 20170905, end: 20171012
  5. TRIAMCINOLONE [Concomitant]
     Active Substance: TRIAMCINOLONE
     Indication: PRURITUS
     Dosage: 0.1 %, QD
     Route: 061
     Dates: start: 20170918
  6. HYDROXYZINE HYDROCHLORIDE. [Concomitant]
     Active Substance: HYDROXYZINE HYDROCHLORIDE
     Indication: PRURITUS
     Dosage: 25 MG, QID
     Route: 048
     Dates: start: 20171030
  7. MUPIROCIN. [Concomitant]
     Active Substance: MUPIROCIN
     Indication: PRURITUS
     Dosage: 2 %, TID
     Route: 061
     Dates: start: 20160211
  8. IPI-145 [Suspect]
     Active Substance: DUVELISIB
     Indication: CUTANEOUS T-CELL LYMPHOMA
     Dosage: 25 MG, BID
     Route: 048
     Dates: start: 20170731, end: 20171030

REACTIONS (4)
  - Rash maculo-papular [Not Recovered/Not Resolved]
  - Dyspnoea [Not Recovered/Not Resolved]
  - Oedema peripheral [Not Recovered/Not Resolved]
  - Fatigue [Not Recovered/Not Resolved]

NARRATIVE: CASE EVENT DATE: 20171108
